FAERS Safety Report 21648602 (Version 4)
Quarter: 2023Q2

REPORT INFORMATION
  Report Type: Spontaneous
  Country: US (occurrence: US)
  Receive Date: 20221128
  Receipt Date: 20230515
  Transmission Date: 20230722
  Serious: No
  Sender: FDA-Public Use
  Company Number: US-BRISTOL-MYERS SQUIBB COMPANY-2022-143767

PATIENT
  Age: 77 Year
  Sex: Male
  Weight: 70.76 kg

DRUGS (3)
  1. REVLIMID [Suspect]
     Active Substance: LENALIDOMIDE
     Indication: Plasma cell myeloma
     Dosage: FREQ: 3W, 1W OFF?DAILY FOR 21DAYS
     Route: 048
     Dates: start: 20220314
  2. REVLIMID [Suspect]
     Active Substance: LENALIDOMIDE
     Indication: Plasma cell myeloma
  3. NEULASTA [Suspect]
     Active Substance: PEGFILGRASTIM
     Indication: Product used for unknown indication

REACTIONS (3)
  - Abdominal pain [Unknown]
  - Pain in extremity [Unknown]
  - Diarrhoea [Unknown]
